FAERS Safety Report 6193339-3 (Version None)
Quarter: 2009Q2

REPORT INFORMATION
  Report Type: 
  Country: None (occurrence: None)
  Receive Date: 20090514
  Receipt Date: 20090504
  Transmission Date: 20091009
  Serious: Yes (Hospitalization)
  Sender: FDA-Public Use
  Company Number: 1-18326452

PATIENT
  Age: 70 Year
  Sex: Male
  Weight: 76.6579 kg

DRUGS (3)
  1. WARFARIN SODIUM [Suspect]
     Indication: MITRAL VALVE REPLACEMENT
     Dosage: 5 MG, ONCE DAILY, ORAL
     Route: 048
     Dates: start: 19990101
  2. ZOCOR [Concomitant]
  3. ACCUPRIL [Concomitant]

REACTIONS (2)
  - INTERNATIONAL NORMALISED RATIO DECREASED [None]
  - TRANSIENT ISCHAEMIC ATTACK [None]
